FAERS Safety Report 7041614-2 (Version None)
Quarter: 2010Q4

REPORT INFORMATION
  Report Type: 
  Country: None (occurrence: None)
  Receive Date: 20101013
  Receipt Date: 20100308
  Transmission Date: 20110411
  Serious: Yes (Hospitalization)
  Sender: FDA-Public Use
  Company Number: US-ASTRAZENECA-2010SE09885

PATIENT
  Sex: Male

DRUGS (5)
  1. SYMBICORT [Suspect]
     Indication: CHRONIC OBSTRUCTIVE PULMONARY DISEASE
     Dosage: 740 MCG BID
     Route: 055
  2. ANTIBIOTICS [Concomitant]
  3. SPIRIVA [Concomitant]
  4. NEBULIZER [Concomitant]
  5. ALBUTEROL [Concomitant]

REACTIONS (1)
  - LUNG INFECTION [None]
